FAERS Safety Report 19840255 (Version 1)
Quarter: 2021Q3

REPORT INFORMATION
  Report Type: Spontaneous
  Country: RU (occurrence: RU)
  Receive Date: 20210916
  Receipt Date: 20210916
  Transmission Date: 20211014
  Serious: Yes (Other)
  Sender: FDA-Public Use
  Company Number: RU-ABBVIE-21P-251-4080826-00

PATIENT

DRUGS (2)
  1. KLACID [Suspect]
     Active Substance: CLARITHROMYCIN
     Indication: OTITIS MEDIA ACUTE
     Dosage: FOR A COURSE OF 7 DAYS.?125/5
     Route: 065
  2. KLACID [Suspect]
     Active Substance: CLARITHROMYCIN
     Indication: PHARYNGITIS

REACTIONS (1)
  - Deafness permanent [Not Recovered/Not Resolved]
